FAERS Safety Report 9326235 (Version 4)
Quarter: 2013Q3

REPORT INFORMATION
  Report Type: Report from Study
  Country: JP (occurrence: JP)
  Receive Date: 20130604
  Receipt Date: 20130827
  Transmission Date: 20140515
  Serious: Yes (Hospitalization)
  Sender: FDA-Public Use
  Company Number: JP-ROCHE-1227629

PATIENT
  Age: 46 Year
  Sex: Female
  Weight: 49.5 kg

DRUGS (15)
  1. TRASTUZUMAB [Suspect]
     Indication: HER-2 POSITIVE BREAST CANCER
     Dosage: 8 MG/KG FOLLOWED BY 6 MG/KG AS PER PROTOCOL.  DATE OF LAST DOSE PRIOR TO SAE: 23/APR/2013.
     Route: 042
     Dates: start: 20130312, end: 20130514
  2. TRASTUZUMAB [Suspect]
     Route: 042
     Dates: start: 20130604
  3. DOCETAXEL [Suspect]
     Indication: HER-2 POSITIVE BREAST CANCER
     Dosage: DATE OF LAST DOSE PRIOR TO SAE: 23/APR/2013.
     Route: 042
     Dates: start: 20130312, end: 20130514
  4. DOCETAXEL [Suspect]
     Route: 042
     Dates: start: 20130604
  5. 5-FU [Suspect]
     Indication: HER-2 POSITIVE BREAST CANCER
     Dosage: DATE OF LAST DOSE PRIOR TO SAE: 12/FEB/2013.
     Route: 042
     Dates: start: 20121121
  6. CYCLOPHOSPHAMIDE [Suspect]
     Indication: HER-2 POSITIVE BREAST CANCER
     Dosage: DATE OF LAST DOSE PRIOR TO SAE: 12/FEB/2013.
     Route: 042
     Dates: start: 20121121
  7. EPIRUBICIN HYDROCHLORIDE [Suspect]
     Indication: HER-2 POSITIVE BREAST CANCER
     Dosage: DATE OF LAST DOSE PRIOR TO SAE: 12/FEB/2013.
     Route: 042
     Dates: start: 20121121
  8. RABEPRAZOLE SODIUM [Concomitant]
     Route: 065
     Dates: start: 20121121
  9. HEPARINOID CREAM [Concomitant]
     Dosage: ADEQUATE DOSE
     Route: 065
     Dates: start: 20120416
  10. BETAMETHASONE BUTYRATE PROPIONATE [Concomitant]
     Dosage: ADEQUATE DOSE
     Route: 065
     Dates: start: 20130501
  11. UREA, CREAM [Concomitant]
     Dosage: ADEQUATE DOSE
     Route: 065
     Dates: start: 20130501
  12. SODIUM GUALENATE [Concomitant]
     Route: 065
     Dates: start: 20130415
  13. PERTUZUMAB [Suspect]
     Indication: HER-2 POSITIVE BREAST CANCER
     Dosage: DATE OF LAST DOSE PRIOR TO SAE: /APR/2013
     Route: 042
     Dates: start: 20130312
  14. PERTUZUMAB [Suspect]
     Route: 042
     Dates: end: 20130514
  15. PERTUZUMAB [Suspect]
     Route: 042
     Dates: start: 20130521

REACTIONS (1)
  - Calculus ureteric [Recovered/Resolved]
